FAERS Safety Report 25208946 (Version 1)
Quarter: 2025Q2

REPORT INFORMATION
  Report Type: Spontaneous
  Country: US (occurrence: None)
  Receive Date: 20250417
  Receipt Date: 20250417
  Transmission Date: 20250717
  Serious: Yes (Other)
  Sender: FDA-CTU
  Company Number: None

PATIENT
  Age: 32 Year
  Sex: Female
  Weight: 67.59 kg

DRUGS (4)
  1. MIRENA [Suspect]
     Active Substance: LEVONORGESTREL
     Dates: start: 20231205, end: 20250416
  2. LEXAPRO [Concomitant]
     Active Substance: ESCITALOPRAM OXALATE
  3. WELLBUTRIN [Suspect]
     Active Substance: BUPROPION HYDROCHLORIDE
  4. ZEPBOUND [Concomitant]
     Active Substance: TIRZEPATIDE

REACTIONS (15)
  - Quality of life decreased [None]
  - Feeling of despair [None]
  - Emotional disorder [None]
  - Crying [None]
  - Depressed mood [None]
  - Feeling of despair [None]
  - Choking [None]
  - Feeling abnormal [None]
  - Movement disorder [None]
  - Fatigue [None]
  - Sleep apnoea syndrome [None]
  - Anger [None]
  - Depressed mood [None]
  - Mental disorder [None]
  - Product communication issue [None]

NARRATIVE: CASE EVENT DATE: 20231206
